FAERS Safety Report 10009230 (Version 2)
Quarter: 2014Q1

REPORT INFORMATION
  Report Type: Spontaneous
  Country: US (occurrence: US)
  Receive Date: 20140313
  Receipt Date: 20140313
  Transmission Date: 20141002
  Serious: No
  Sender: FDA-Public Use
  Company Number: US-GILEAD-2013-0074226

PATIENT
  Age: 68 Year
  Sex: Female

DRUGS (2)
  1. LETAIRIS [Suspect]
     Indication: PULMONARY HYPERTENSION
     Dosage: 5 MG, UNK
     Route: 048
     Dates: start: 20130201, end: 20130416
  2. LETAIRIS [Suspect]
     Indication: IDIOPATHIC PULMONARY FIBROSIS

REACTIONS (3)
  - Cough [Unknown]
  - Dyspnoea [Unknown]
  - Fluid retention [Unknown]
